FAERS Safety Report 23630260 (Version 4)
Quarter: 2024Q3

REPORT INFORMATION
  Report Type: Report from Study
  Country: BE (occurrence: BE)
  Receive Date: 20240314
  Receipt Date: 20240822
  Transmission Date: 20241016
  Serious: Yes (Death, Hospitalization, Other)
  Sender: ABBVIE
  Company Number: BE-JNJFOC-20171132805

PATIENT
  Age: 71 Year
  Sex: Male

DRUGS (4)
  1. IBRUTINIB [Suspect]
     Active Substance: IBRUTINIB
     Indication: Mantle cell lymphoma
     Route: 048
     Dates: start: 20150914, end: 20171031
  2. IBRUTINIB [Suspect]
     Active Substance: IBRUTINIB
     Indication: Mantle cell lymphoma
     Route: 048
     Dates: start: 20150914, end: 20171104
  3. IBRUTINIB [Suspect]
     Active Substance: IBRUTINIB
     Indication: Mantle cell lymphoma
     Route: 048
     Dates: start: 20170818, end: 20171031
  4. IBRUTINIB [Suspect]
     Active Substance: IBRUTINIB
     Indication: Mantle cell lymphoma
     Route: 048
     Dates: start: 20171031, end: 20171124

REACTIONS (6)
  - Spontaneous splenic rupture [Fatal]
  - Femoral neck fracture [Fatal]
  - Pyrexia [Fatal]
  - Bicytopenia [Fatal]
  - Fall [Recovered/Resolved]
  - Atrial fibrillation [Fatal]

NARRATIVE: CASE EVENT DATE: 20171030
